FAERS Safety Report 6926021-2 (Version None)
Quarter: 2010Q3

REPORT INFORMATION
  Report Type: 
  Country: None (occurrence: None)
  Receive Date: 20100816
  Receipt Date: 20100804
  Transmission Date: 20110219
  Serious: Yes (Other)
  Sender: FDA-Public Use
  Company Number: US-PFIZER INC-2010007002

PATIENT
  Sex: Female
  Weight: 65 kg

DRUGS (12)
  1. CHANTIX [Suspect]
     Indication: SMOKING CESSATION THERAPY
     Dosage: 0.5 MG, 1X/DAY
     Route: 048
     Dates: start: 20080101, end: 20080101
  2. CHANTIX [Suspect]
     Dosage: UNK
     Route: 048
     Dates: start: 20100118, end: 20100101
  3. PRILOSEC [Concomitant]
     Indication: GASTROOESOPHAGEAL REFLUX DISEASE
     Dosage: 100 MG, 2X/DAY
     Route: 048
  4. SUCRALFATE [Concomitant]
     Indication: NEOPLASM MALIGNANT
     Dosage: 1 MG, 1X/DAY
  5. NEURONTIN [Concomitant]
     Indication: NEOPLASM MALIGNANT
     Dosage: 300 MG, 1X/DAY
  6. POTASSIUM [Concomitant]
     Indication: NEOPLASM MALIGNANT
     Dosage: 10 MG, 3X/DAY
     Route: 048
  7. ZOCOR [Concomitant]
     Indication: NEOPLASM MALIGNANT
     Dosage: 20 MG, 1X/DAY
     Route: 048
  8. ZOLOFT [Concomitant]
     Indication: NEOPLASM MALIGNANT
     Dosage: 50 MG, 1X/DAY
     Route: 048
  9. WELLBUTRIN [Concomitant]
     Indication: NEOPLASM MALIGNANT
     Dosage: 150 MG, 2X/DAY
     Route: 048
  10. LASIX [Concomitant]
     Indication: NEOPLASM MALIGNANT
     Dosage: 40 MG, 1X/DAY
     Route: 048
  11. MORPHINE [Concomitant]
     Indication: NEOPLASM MALIGNANT
     Dosage: 30 MG, 2X/DAY
     Route: 048
  12. ROXICODONE [Concomitant]
     Indication: NEOPLASM MALIGNANT
     Dosage: 30 MG, 3X/DAY
     Route: 048

REACTIONS (4)
  - ABDOMINAL DISCOMFORT [None]
  - MALAISE [None]
  - NAUSEA [None]
  - RECURRENT CANCER [None]
